FAERS Safety Report 8143857-3 (Version None)
Quarter: 2012Q1

REPORT INFORMATION
  Report Type: 
  Country: None (occurrence: None)
  Receive Date: 20120217
  Receipt Date: 20120207
  Transmission Date: 20120608
  Serious: Yes (Other)
  Sender: FDA-Public Use
  Company Number: US-JNJFOC-20120204971

PATIENT
  Sex: Female
  Weight: 60.33 kg

DRUGS (4)
  1. PREVACID [Concomitant]
     Indication: GASTROOESOPHAGEAL REFLUX DISEASE
     Route: 048
     Dates: start: 20100101
  2. LOESTRIN 1.5/30 [Concomitant]
     Indication: CONTRACEPTION
     Route: 048
     Dates: start: 20110101
  3. REMICADE [Suspect]
     Indication: CROHN'S DISEASE
     Route: 042
     Dates: start: 20110101
  4. PENTASA [Concomitant]
     Indication: CROHN'S DISEASE
     Route: 048
     Dates: start: 20100101

REACTIONS (3)
  - HIATUS HERNIA [None]
  - ALOPECIA [None]
  - CHEST PAIN [None]
